FAERS Safety Report 9435974 (Version 1)
Quarter: 2013Q3

REPORT INFORMATION
  Report Type: Spontaneous
  Country: SG (occurrence: ID)
  Receive Date: 20130801
  Receipt Date: 20130801
  Transmission Date: 20140515
  Serious: Yes (Death, Life-Threatening, Hospitalization, Disabling, Other)
  Sender: FDA-Public Use
  Company Number: SG-009507513-1307IDN014980

PATIENT
  Age: 4 Year
  Sex: Male

DRUGS (2)
  1. ZENHALE [Suspect]
     Indication: ASTHMA
     Dosage: 2 PUFFS, BD
     Route: 055
     Dates: start: 201305, end: 201307
  2. SERETIDE [Suspect]
     Indication: ASTHMA
     Dosage: UNK
     Dates: start: 201307

REACTIONS (5)
  - Asthma [Fatal]
  - Endotracheal intubation [Unknown]
  - Cardiac arrest [Unknown]
  - Upper respiratory tract infection [Unknown]
  - Off label use [Unknown]
